FAERS Safety Report 23595970 (Version 4)
Quarter: 2024Q3

REPORT INFORMATION
  Report Type: Spontaneous
  Country: JP (occurrence: JP)
  Receive Date: 20240305
  Receipt Date: 20240912
  Transmission Date: 20241016
  Serious: Yes (Death, Hospitalization, Other)
  Sender: GENMAB
  Company Number: JP-GENMAB-2024-00246AA

PATIENT
  Age: 78 Year
  Sex: Male
  Weight: 50 kg

DRUGS (5)
  1. EPKINLY [Suspect]
     Active Substance: EPCORITAMAB-BYSP
     Indication: Diffuse large B-cell lymphoma
     Dosage: UNK, THE FIRST ADMINISTRATION IN CYCLE 1 TO THE THIRD ADMINISTRATION
     Route: 058
     Dates: start: 20231221
  2. EPKINLY [Suspect]
     Active Substance: EPCORITAMAB-BYSP
     Dosage: 48 MILLIGRAM
     Route: 058
     Dates: start: 20240111, end: 20240111
  3. CORTICOTROPIN [Concomitant]
     Active Substance: CORTICOTROPIN
     Indication: Prophylaxis
     Dosage: UNK, FROM THE FIRST ADMINISTRATION IN CYCLE 1 TO THE THIRD ADMINISTRATION
     Dates: start: 20231221
  4. ANTIHISTAMINES NOS [Concomitant]
     Active Substance: ANTIHISTAMINES NOS
     Indication: Prophylaxis
     Dosage: UNK,  FROM THE FIRST ADMINISTRATION IN CYCLE 1 TO THE THIRD ADMINISTRATION
     Dates: start: 20231221
  5. UNSPECIFIED INGREDIENT [Concomitant]
     Active Substance: UNSPECIFIED INGREDIENT
     Indication: Prophylaxis
     Dosage: UNK,  FROM THE FIRST ADMINISTRATION IN CYCLE 1 TO THE THIRD ADMINISTRATION
     Dates: start: 20231221

REACTIONS (3)
  - Septic shock [Fatal]
  - Myelosuppression [Unknown]
  - Cytokine release syndrome [Recovering/Resolving]

NARRATIVE: CASE EVENT DATE: 20240101
